FAERS Safety Report 5315412-1 (Version None)
Quarter: 2007Q2

REPORT INFORMATION
  Report Type: 
  Country: None (occurrence: None)
  Receive Date: 20070503
  Receipt Date: 20070424
  Transmission Date: 20071010
  Serious: Yes (Other)
  Sender: FDA-Public Use
  Company Number: PHEH2007US04539

PATIENT
  Age: 33 Year
  Sex: Male
  Weight: 144.67 kg

DRUGS (2)
  1. ZELNORM [Suspect]
     Dosage: UNK, UNK
     Dates: start: 20070201, end: 20070401
  2. NAPROXEN [Concomitant]

REACTIONS (4)
  - CARDIAC DISORDER [None]
  - CYST [None]
  - OEDEMA PERIPHERAL [None]
  - THROMBOSIS [None]
